FAERS Safety Report 5418070-0 (Version None)
Quarter: 2007Q3

REPORT INFORMATION
  Report Type: 
  Country: None (occurrence: None)
  Receive Date: 20070817
  Receipt Date: 20070808
  Transmission Date: 20080115
  Serious: Yes (Life-Threatening, Hospitalization)
  Sender: FDA-Public Use
  Company Number: FR-BAXTER-2007BH005584

PATIENT
  Age: 52 Year
  Sex: Female
  Weight: 67 kg

DRUGS (1)
  1. SUPRANE [Suspect]
     Indication: DRUG USE FOR UNKNOWN INDICATION
     Dosage: DOSE UNIT:UNKNOWN
     Route: 055
     Dates: start: 20070312, end: 20070312

REACTIONS (7)
  - ACCIDENTAL EXPOSURE [None]
  - ENCEPHALOPATHY [None]
  - HEPATITIS [None]
  - PANCREATITIS ACUTE [None]
  - PLEURAL EFFUSION [None]
  - RESPIRATORY FAILURE [None]
  - TACHYARRHYTHMIA [None]
